FAERS Safety Report 17176587 (Version 8)
Quarter: 2022Q4

REPORT INFORMATION
  Report Type: Report from Study
  Country: DE (occurrence: DE)
  Receive Date: 20191219
  Receipt Date: 20221229
  Transmission Date: 20230113
  Serious: Yes (Hospitalization, Other)
  Sender: FDA-Public Use
  Company Number: DE-002147023-PHHY2019DE186078

PATIENT
  Sex: Female
  Weight: 65 kg

DRUGS (4)
  1. FULVESTRANT [Suspect]
     Active Substance: FULVESTRANT
     Indication: Breast cancer metastatic
     Dosage: 500 MILLIGRAM, Q28D
     Route: 030
     Dates: start: 20190719, end: 20210520
  2. KISQALI [Suspect]
     Active Substance: RIBOCICLIB
     Indication: Breast cancer metastatic
     Dosage: 600MG,QD (SCHEME 21D INTAKE, THAN 7D PAUSE)
     Route: 048
     Dates: start: 20190722, end: 20190930
  3. KISQALI [Suspect]
     Active Substance: RIBOCICLIB
     Dosage: 600MG,QD (SCHEME 21D INTAKE, THAN 7D PAUSE)
     Route: 048
     Dates: start: 20190722, end: 20210523
  4. CLINDAMYCIN [Concomitant]
     Active Substance: CLINDAMYCIN
     Indication: Tooth extraction
     Dosage: 1800 MILLIGRAM, QD (600 MG, TID)
     Route: 065
     Dates: start: 20191124, end: 20191130

REACTIONS (15)
  - Pleural effusion [Recovering/Resolving]
  - Abdominal wall abscess [Not Recovered/Not Resolved]
  - Blood urea increased [Recovering/Resolving]
  - Blood uric acid increased [Recovering/Resolving]
  - Dyspnoea [Not Recovered/Not Resolved]
  - Blood creatinine increased [Recovering/Resolving]
  - Aspartate aminotransferase increased [Recovering/Resolving]
  - Alanine aminotransferase increased [Recovering/Resolving]
  - General physical health deterioration [Recovering/Resolving]
  - Dental caries [Not Recovered/Not Resolved]
  - Weight decreased [Not Recovered/Not Resolved]
  - Nausea [Recovering/Resolving]
  - Diarrhoea [Recovered/Resolved]
  - Vomiting [Recovered/Resolved]
  - Anaemia [Recovering/Resolving]

NARRATIVE: CASE EVENT DATE: 20190722
